FAERS Safety Report 4313942-2 (Version None)
Quarter: 2004Q1

REPORT INFORMATION
  Report Type: 
  Country: None (occurrence: None)
  Receive Date: 20040305
  Receipt Date: 20040223
  Transmission Date: 20041129
  Serious: Yes (Hospitalization)
  Sender: FDA-Public Use
  Company Number: 2004PK00390

PATIENT
  Age: 65 Year
  Sex: Female

DRUGS (3)
  1. NOLVADEX [Suspect]
     Indication: BREAST CANCER
     Dosage: 20 MG DAILY; PO
     Route: 048
     Dates: start: 20000122
  2. NORVASC [Concomitant]
  3. SOLOTRIM [Concomitant]

REACTIONS (2)
  - ANAL SPHINCTER ATONY [None]
  - COLONIC POLYP [None]
